FAERS Safety Report 6663068-8 (Version None)
Quarter: 2010Q1

REPORT INFORMATION
  Report Type: 
  Country: None (occurrence: None)
  Receive Date: 20100326
  Receipt Date: 20090915
  Transmission Date: 20100710
  Serious: Yes (Other)
  Sender: FDA-Public Use
  Company Number: 2009EN000255

PATIENT
  Age: 6 Year
  Sex: Female
  Weight: 23 kg

DRUGS (4)
  1. ONCASPAR [Suspect]
     Indication: ACUTE LYMPHOCYTIC LEUKAEMIA
     Dosage: 2200 IU; IM
     Route: 030
     Dates: start: 20090908, end: 20090908
  2. VINCRISTINE [Concomitant]
  3. SEPTRA [Concomitant]
  4. NYSTATIN [Concomitant]

REACTIONS (3)
  - HYPERSENSITIVITY [None]
  - PRURITUS [None]
  - URTICARIA [None]
